FAERS Safety Report 8667272 (Version 2)
Quarter: 2012Q4

REPORT INFORMATION
  Report Type: 
  Country: JP (occurrence: JP)
  Receive Date: 20120717
  Receipt Date: 20120924
  Transmission Date: 20130627
  Serious: Yes (Other)
  Sender: FDA-Public Use
  Company Number: JP-ELI_LILLY_AND_COMPANY-JP201207002542

PATIENT
  Age: 55 Year
  Sex: Female

DRUGS (4)
  1. GEMZAR [Suspect]
     Indication: PANCREATIC CARCINOMA
     Dosage: 1000 mg/m2, UNK
     Route: 042
  2. GEMZAR [Suspect]
     Dosage: 1000 mg/m2, UNK
     Route: 042
  3. TS 1 [Concomitant]
     Indication: PANCREATIC CARCINOMA
     Dosage: 60 mg/m2, UNK
     Route: 048
  4. TS 1 [Concomitant]
     Dosage: 60 mg/m2, UNK
     Route: 048

REACTIONS (2)
  - Pancreaticoduodenectomy [Recovered/Resolved]
  - Neutrophil count decreased [Recovered/Resolved]
